FAERS Safety Report 9279445 (Version 2)
Quarter: 2013Q2

REPORT INFORMATION
  Report Type: Spontaneous
  Country: US (occurrence: US)
  Receive Date: 20130508
  Receipt Date: 20130613
  Transmission Date: 20140414
  Serious: No
  Sender: FDA-Public Use
  Company Number: US-009507513-1305USA003064

PATIENT
  Sex: Male

DRUGS (4)
  1. VICTRELIS [Suspect]
     Indication: CHRONIC HEPATITIS C
     Dosage: 800 MG, TID
     Route: 048
     Dates: start: 20130311
  2. PEGINTRON [Suspect]
     Indication: CHRONIC HEPATITIS C
     Dosage: 120 MICROGRAM/0.5 ML, REDIPEN, QW
     Route: 058
     Dates: start: 20130430
  3. RIBASPHERE [Suspect]
  4. METFORMIN [Concomitant]
     Dosage: UNK

REACTIONS (6)
  - Mood altered [Not Recovered/Not Resolved]
  - White blood cell count decreased [Unknown]
  - Diarrhoea [Unknown]
  - Dyspnoea [Unknown]
  - Red blood cell count decreased [Unknown]
  - Nausea [Unknown]
